FAERS Safety Report 9009461 (Version 2)
Quarter: 2013Q1

REPORT INFORMATION
  Report Type: Spontaneous
  Country: FR (occurrence: FR)
  Receive Date: 20130112
  Receipt Date: 20130205
  Transmission Date: 20140127
  Serious: Yes (Hospitalization)
  Sender: FDA-Public Use
  Company Number: FR-AMGEN-FRASP2013000162

PATIENT
  Age: 34 Year
  Sex: Female

DRUGS (4)
  1. NPLATE [Suspect]
     Indication: IDIOPATHIC THROMBOCYTOPENIC PURPURA
     Dosage: 1 MUG/KG, QWK
     Route: 058
     Dates: start: 200910
  2. TEGELINE [Suspect]
     Dosage: 30 G, UNK
     Route: 042
     Dates: start: 201110, end: 201110
  3. MABTHERA [Concomitant]
  4. PRIVIGEN                           /00025201/ [Concomitant]

REACTIONS (1)
  - Renal vein thrombosis [Recovering/Resolving]
